FAERS Safety Report 8444844-8 (Version None)
Quarter: 2012Q2

REPORT INFORMATION
  Report Type: 
  Country: None (occurrence: None)
  Receive Date: 20120612
  Receipt Date: 20120612
  Transmission Date: 20120825
  Serious: Yes (Life-Threatening, Hospitalization, Disabling)
  Sender: FDA-Public Use
  Company Number: None

PATIENT
  Age: 67 Year
  Sex: Male
  Weight: 56.6996 kg

DRUGS (2)
  1. EFFIENT [Suspect]
     Indication: MYOCARDIAL INFARCTION
     Dosage: ONE TABLET, ONCE A DAY, PO
     Route: 048
  2. EFFIENT [Suspect]
     Indication: CORONARY ARTERIAL STENT INSERTION
     Dosage: ONE TABLET, ONCE A DAY, PO
     Route: 048

REACTIONS (11)
  - LETHARGY [None]
  - OEDEMA MOUTH [None]
  - PHARYNGEAL OEDEMA [None]
  - HAEMORRHAGE [None]
  - DECUBITUS ULCER [None]
  - RENAL IMPAIRMENT [None]
  - DYSPHAGIA [None]
  - ALTERED STATE OF CONSCIOUSNESS [None]
  - BLOOD POTASSIUM DECREASED [None]
  - DEHYDRATION [None]
  - BLOOD COUNT ABNORMAL [None]
